FAERS Safety Report 7717738-0 (Version None)
Quarter: 2011Q3

REPORT INFORMATION
  Report Type: 
  Country: None (occurrence: None)
  Receive Date: 20110830
  Receipt Date: 20110818
  Transmission Date: 20111222
  Serious: Yes (Hospitalization)
  Sender: FDA-Public Use
  Company Number: JP-SANOFI-AVENTIS-2011SA054695

PATIENT
  Age: 82 Year
  Sex: Female
  Weight: 51.8 kg

DRUGS (13)
  1. PREDNISOLONE [Concomitant]
  2. SOLITA-T3 INJECTION [Concomitant]
  3. ALLEGRA [Suspect]
     Indication: DRUG ERUPTION
     Route: 048
     Dates: start: 20110706, end: 20110712
  4. FAMOTIDINE [Suspect]
     Route: 048
     Dates: start: 20110703, end: 20110713
  5. ALL OTHER THERAPEUTIC PRODUCTS [Concomitant]
  6. HEPARIN SODIUM [Concomitant]
  7. CORTICOSTEROIDS [Concomitant]
     Route: 048
  8. POLARAMINE [Suspect]
     Route: 048
     Dates: start: 20110702, end: 20110713
  9. ITRACONAZOLE [Concomitant]
  10. ACETAMINOPHEN [Concomitant]
  11. ALL OTHER THERAPEUTIC PRODUCTS [Concomitant]
  12. PLAVIX [Concomitant]
  13. ALL OTHER THERAPEUTIC PRODUCTS [Concomitant]

REACTIONS (1)
  - HEPATIC FUNCTION ABNORMAL [None]
